FAERS Safety Report 6443274-8 (Version None)
Quarter: 2009Q4

REPORT INFORMATION
  Report Type: 
  Country: None (occurrence: None)
  Receive Date: 20091113
  Receipt Date: 20091104
  Transmission Date: 20100525
  Serious: Yes (Death, Hospitalization)
  Sender: FDA-Public Use
  Company Number: 2009AC000357

PATIENT
  Age: 66 Year
  Sex: Male

DRUGS (23)
  1. DIGOXIN [Suspect]
     Dosage: 0.125 MG; QD; PO
     Route: 048
  2. PREDNISONE [Concomitant]
  3. HYDROCODONE [Concomitant]
  4. MUCINEX [Concomitant]
  5. FOLIC ACID [Concomitant]
  6. BENADRYL [Concomitant]
  7. KLONOPIN [Concomitant]
  8. POTASSIUM [Concomitant]
  9. MAGNESIUM [Concomitant]
  10. COUMADIN [Concomitant]
  11. IMDUR [Concomitant]
  12. TORSEMIDE [Concomitant]
  13. DIURIL [Concomitant]
  14. REMERON [Concomitant]
  15. DUONEB [Concomitant]
  16. ALDACTONE [Concomitant]
  17. TIKOSYN [Concomitant]
  18. ISOSORBIDE [Concomitant]
  19. PULMICORT [Concomitant]
  20. CLONAZEPAM [Concomitant]
  21. COMBIVENT [Concomitant]
  22. LORTAB [Concomitant]
  23. IRON [Concomitant]

REACTIONS (16)
  - ANHEDONIA [None]
  - ASTHENIA [None]
  - CARDIAC FAILURE CONGESTIVE [None]
  - DECREASED APPETITE [None]
  - DIZZINESS [None]
  - ECONOMIC PROBLEM [None]
  - FATIGUE [None]
  - FLUID OVERLOAD [None]
  - HYPOTENSION [None]
  - IRON DEFICIENCY ANAEMIA [None]
  - MENTAL DISORDER [None]
  - OEDEMA PERIPHERAL [None]
  - ORTHOPNOEA [None]
  - PAIN [None]
  - RENAL FAILURE [None]
  - WHITE BLOOD CELL COUNT INCREASED [None]
